FAERS Safety Report 4587949-4 (Version None)
Quarter: 2005Q1

REPORT INFORMATION
  Report Type: 
  Country: None (occurrence: None)
  Receive Date: 20050214
  Receipt Date: 20050204
  Transmission Date: 20050727
  Serious: Yes (Death)
  Sender: FDA-Public Use
  Company Number: 10056

PATIENT
  Age: 80 Year
  Sex: Male

DRUGS (4)
  1. DOXORUBICIN HCL [Suspect]
     Dosage: 88 MG, IV
     Route: 042
     Dates: start: 20040706, end: 20040706
  2. VINCRISTINE [Suspect]
     Dosage: 1 MG, IV
     Route: 036
     Dates: start: 20040706, end: 20040706
  3. CYCLOPHOSPHAMIDE [Suspect]
     Dosage: 880 MG, IV
     Route: 042
     Dates: start: 20040706, end: 20040706
  4. RITUXIMAB [Suspect]
     Dosage: 660 MG, IV
     Route: 042
     Dates: start: 20040706, end: 20040706

REACTIONS (1)
  - NEUTROPENIC SEPSIS [None]
